FAERS Safety Report 16349057 (Version 1)
Quarter: 2019Q2

REPORT INFORMATION
  Report Type: Spontaneous
  Country: FR (occurrence: FR)
  Receive Date: 20190523
  Receipt Date: 20190523
  Transmission Date: 20190711
  Serious: Yes (Other)
  Sender: FDA-Public Use
  Company Number: FR-MYLANLABS-2019M1047847

PATIENT
  Age: 89 Year
  Sex: Male
  Weight: 60 kg

DRUGS (3)
  1. VANCOMYCINE MYLAN 1 G, POUDRE POUR SOLUTION POUR PERFUSION [Suspect]
     Active Substance: VANCOMYCIN
     Indication: ARTHRITIS BACTERIAL
     Dosage: 2 GRAM, QD
     Route: 041
     Dates: start: 20180919
  2. GENTAMICINE PANPHARMA [Interacting]
     Active Substance: GENTAMICIN
     Indication: ARTHRITIS BACTERIAL
     Dosage: 180 MILLIGRAM, TOTAL
     Route: 041
     Dates: start: 20180919
  3. PIPERACILLIN AND TAZOBACTAM [Suspect]
     Active Substance: PIPERACILLIN SODIUM\TAZOBACTAM SODIUM
     Indication: ARTHRITIS BACTERIAL
     Dosage: 8 GRAM, QD
     Route: 041
     Dates: start: 20180920, end: 20180922

REACTIONS (3)
  - Drug interaction [Unknown]
  - Antibiotic level above therapeutic [Recovered/Resolved]
  - Acute kidney injury [Recovered/Resolved]

NARRATIVE: CASE EVENT DATE: 20180920
